FAERS Safety Report 14285419 (Version 1)
Quarter: 2017Q4

REPORT INFORMATION
  Report Type: Spontaneous
  Country: US (occurrence: None)
  Receive Date: 20171214
  Receipt Date: 20171214
  Transmission Date: 20180321
  Serious: No
  Sender: FDA-Public Use
  Company Number: None

PATIENT
  Age: 37 Year
  Sex: Female
  Weight: 116.12 kg

DRUGS (1)
  1. NEXPLANON [Suspect]
     Active Substance: ETONOGESTREL
     Indication: CONTRACEPTION
     Dosage: Q3YEARS
     Route: 003
     Dates: start: 20171208, end: 20171213

REACTIONS (4)
  - Injection site swelling [None]
  - Injection site pruritus [None]
  - Alopecia [None]
  - Injection site erythema [None]

NARRATIVE: CASE EVENT DATE: 20171213
